FAERS Safety Report 17060932 (Version 3)
Quarter: 2019Q4

REPORT INFORMATION
  Report Type: Spontaneous
  Country: US (occurrence: US)
  Receive Date: 20191121
  Receipt Date: 20191206
  Transmission Date: 20200122
  Serious: Yes (Disabling, Other)
  Sender: FDA-Public Use
  Company Number: US-JNJFOC-20191121822

PATIENT
  Age: 36 Year
  Sex: Male

DRUGS (1)
  1. FENTANYL. [Suspect]
     Active Substance: FENTANYL
     Indication: PRODUCT USED FOR UNKNOWN INDICATION

REACTIONS (5)
  - Retinopathy [Unknown]
  - Overdose [Unknown]
  - Incorrect route of product administration [Unknown]
  - Anterograde amnesia [Recovering/Resolving]
  - Off label use [Unknown]
